FAERS Safety Report 4398901-6 (Version None)
Quarter: 2004Q2

REPORT INFORMATION
  Report Type: 
  Country: None (occurrence: None)
  Receive Date: 20040621
  Receipt Date: 20040213
  Transmission Date: 20050107
  Serious: Yes (Death, Other)
  Sender: FDA-Public Use
  Company Number: USA-2003-0007095

PATIENT
  Age: 56 Year
  Sex: Male
  Weight: 81.2 kg

DRUGS (6)
  1. OXYCONTIN [Suspect]
  2. COCAINE (COCAINE) [Suspect]
  3. CAFFEINE (CAFFEINE) [Suspect]
  4. NICOTINE [Suspect]
  5. LIDOCAINE [Suspect]
  6. GLUCOTROL [Concomitant]

REACTIONS (2)
  - DRUG ABUSER [None]
  - OVERDOSE [None]
